FAERS Safety Report 8549082-6 (Version None)
Quarter: 2012Q3

REPORT INFORMATION
  Report Type: 
  Country: None (occurrence: None)
  Receive Date: 20120730
  Receipt Date: 20120727
  Transmission Date: 20120928
  Serious: Yes (Other)
  Sender: FDA-Public Use
  Company Number: US-PFIZER INC-2012182971

PATIENT
  Sex: Female
  Weight: 89.796 kg

DRUGS (5)
  1. CHANTIX [Suspect]
     Indication: SMOKING CESSATION THERAPY
     Dosage: UNK
     Dates: start: 20120101, end: 20120101
  2. ALBUTEROL [Concomitant]
     Indication: ASTHMA
     Dosage: UNK, AS NEEDED
  3. ANASTROZOLE [Concomitant]
     Indication: BREAST CANCER FEMALE
     Dosage: 1 MG,DAILY
  4. ADVAIR DISKUS 100/50 [Concomitant]
     Indication: ASTHMA
     Dosage: UNK,DAILY
  5. HYDROCORTISONE [Concomitant]
     Indication: PAIN
     Dosage: 750 MG, 2X/DAY

REACTIONS (5)
  - NIGHTMARE [None]
  - PALPITATIONS [None]
  - ASTHMA [None]
  - NIGHT SWEATS [None]
  - CONSTIPATION [None]
